FAERS Safety Report 7427155-9 (Version None)
Quarter: 2011Q2

REPORT INFORMATION
  Report Type: 
  Country: None (occurrence: None)
  Receive Date: 20110420
  Receipt Date: 20110415
  Transmission Date: 20111010
  Serious: Yes (Other)
  Sender: FDA-Public Use
  Company Number: BR-PFIZER INC-2011065518

PATIENT
  Age: 51 Year
  Sex: Female
  Weight: 68 kg

DRUGS (9)
  1. CIPROFIBRATE [Concomitant]
     Indication: BLOOD TRIGLYCERIDES
     Dosage: UNK
  2. GEROVITAL [Concomitant]
     Dosage: UNK
  3. CHAMPIX [Suspect]
     Indication: TOBACCO USER
     Dosage: UNK
     Route: 048
     Dates: start: 20110315
  4. CALCIUM [Concomitant]
     Indication: BONE DISORDER
     Dosage: UNK
  5. CHAMPIX [Suspect]
     Dosage: 1 MG, 2X/DAY (EVERY 12 HOURS)
     Route: 048
     Dates: end: 20110408
  6. ESTRADIOL VALERATE [Concomitant]
     Indication: HORMONE REPLACEMENT THERAPY
     Dosage: UNK
  7. SIMVASTATIN [Concomitant]
     Indication: BLOOD CHOLESTEROL INCREASED
     Dosage: UNK
  8. CALCIUM [Concomitant]
     Indication: OSTEOPENIA
  9. CENTRUM [Concomitant]
     Dosage: UNK

REACTIONS (3)
  - DISTURBANCE IN ATTENTION [None]
  - ACUTE SINUSITIS [None]
  - DYSPNOEA [None]
